FAERS Safety Report 25622200 (Version 1)
Quarter: 2025Q3

REPORT INFORMATION
  Report Type: Spontaneous
  Country: JO (occurrence: None)
  Receive Date: 20250729
  Receipt Date: 20250729
  Transmission Date: 20251020
  Serious: Yes (Disabling)
  Sender: FDA-CTU
  Company Number: None

PATIENT
  Age: 37 Year
  Sex: Female
  Weight: 62 kg

DRUGS (1)
  1. DYSPORT [Suspect]
     Active Substance: ABOBOTULINUMTOXINA

REACTIONS (5)
  - Brow ptosis [None]
  - Eyelid ptosis [None]
  - Dry eye [None]
  - Headache [None]
  - Lymphatic disorder [None]

NARRATIVE: CASE EVENT DATE: 20250525
